FAERS Safety Report 22179160 (Version 1)
Quarter: 2023Q2

REPORT INFORMATION
  Report Type: Spontaneous
  Country: US (occurrence: US)
  Receive Date: 20230406
  Receipt Date: 20230406
  Transmission Date: 20230722
  Serious: Yes (Other)
  Sender: FDA-Public Use
  Company Number: US-GLAXOSMITHKLINE-USCH2023AMR014380

PATIENT

DRUGS (1)
  1. SCOPOLAMINE [Suspect]
     Active Substance: SCOPOLAMINE
     Indication: Product used for unknown indication
     Dosage: UNK
     Dates: start: 2022

REACTIONS (6)
  - Cerebellar stroke [Unknown]
  - Vertigo [Unknown]
  - Vomiting [Unknown]
  - Skin erosion [Unknown]
  - Product administered at inappropriate site [Unknown]
  - Product complaint [Unknown]
